FAERS Safety Report 13954583 (Version 6)
Quarter: 2018Q2

REPORT INFORMATION
  Report Type: Report from Study
  Country: None (occurrence: DE)
  Receive Date: 20170911
  Receipt Date: 20180402
  Transmission Date: 20180711
  Serious: Yes (Death, Other)
  Sender: FDA-Public Use
  Company Number: DE-ABBVIE-17P-062-2093541-00

PATIENT
  Age: 54 Year
  Sex: Male
  Weight: 52 kg

DRUGS (7)
  1. CEFTRIAXON [Concomitant]
     Active Substance: CEFTRIAXONE
     Indication: PRODUCT USED FOR UNKNOWN INDICATION
     Route: 065
  2. RILUZOL [Concomitant]
     Indication: PRODUCT USED FOR UNKNOWN INDICATION
  3. VIEKIRAX [Suspect]
     Active Substance: OMBITASVIR\PARITAPREVIR\RITONAVIR
     Indication: CHRONIC HEPATITIS C
     Route: 048
     Dates: start: 20170308, end: 20170502
  4. SALBUTAMOL [Concomitant]
     Active Substance: ALBUTEROL
     Indication: PRODUCT USED FOR UNKNOWN INDICATION
     Route: 065
  5. LEVOTHYROXINE. [Concomitant]
     Active Substance: LEVOTHYROXINE
     Indication: PRODUCT USED FOR UNKNOWN INDICATION
  6. TRAMAL [Concomitant]
     Active Substance: TRAMADOL
     Indication: PRODUCT USED FOR UNKNOWN INDICATION
  7. EXVIERA [Suspect]
     Active Substance: DASABUVIR
     Indication: CHRONIC HEPATITIS C
     Route: 048
     Dates: start: 20170308, end: 20170502

REACTIONS (11)
  - Pancreatic carcinoma metastatic [Fatal]
  - Portal vein stenosis [Unknown]
  - Lymph gland infection [Unknown]
  - Hepatic artery stenosis [Unknown]
  - Sepsis [Fatal]
  - Metastatic salivary gland cancer [Fatal]
  - Cholangitis [Fatal]
  - Cholestasis [Fatal]
  - Jaundice [Not Recovered/Not Resolved]
  - Pancreatic carcinoma metastatic [Unknown]
  - Tumour compression [Unknown]

NARRATIVE: CASE EVENT DATE: 2017
